FAERS Safety Report 15668366 (Version 1)
Quarter: 2018Q4

REPORT INFORMATION
  Report Type: Spontaneous
  Country: FI (occurrence: FI)
  Receive Date: 20181129
  Receipt Date: 20181129
  Transmission Date: 20190205
  Serious: Yes (Disabling)
  Sender: FDA-Public Use
  Company Number: FI-AMGEN-FINSP2018169084

PATIENT
  Age: 78 Year
  Sex: Male

DRUGS (5)
  1. ATACAND [Concomitant]
     Active Substance: CANDESARTAN CILEXETIL
     Dosage: 4,MG,DAILY
     Route: 048
  2. XGEVA [Suspect]
     Active Substance: DENOSUMAB
     Indication: METASTASES TO BONE
     Dosage: UNK
     Route: 058
  3. XTANDI [Concomitant]
     Active Substance: ENZALUTAMIDE
     Dosage: 160,MG,DAILY
     Route: 048
  4. ENANTON DEPOT DUAL [Concomitant]
     Indication: PROSTATE CANCER
     Dosage: UNK
     Route: 058
  5. KALCIPOS-D [Concomitant]
     Active Substance: CALCIUM CARBONATE\CHOLECALCIFEROL
     Dosage: 2,DF,DAILY
     Route: 048

REACTIONS (4)
  - Osteonecrosis of jaw [Unknown]
  - Infected fistula [Unknown]
  - Gingivitis [Unknown]
  - Jaw fistula [Unknown]

NARRATIVE: CASE EVENT DATE: 201804
